FAERS Safety Report 7970007-6 (Version None)
Quarter: 2011Q4

REPORT INFORMATION
  Report Type: 
  Country: None (occurrence: None)
  Receive Date: 20111212
  Receipt Date: 20111130
  Transmission Date: 20120403
  Serious: Yes (Hospitalization, Other)
  Sender: FDA-Public Use
  Company Number: BR-US-EMD SERONO, INC.-7099281

PATIENT
  Sex: Female

DRUGS (4)
  1. ACETAMINOPHEN [Concomitant]
  2. REBIF [Suspect]
     Indication: RELAPSING-REMITTING MULTIPLE SCLEROSIS
     Route: 058
     Dates: start: 20040214
  3. HIXIZINE [Concomitant]
  4. NAPROXEN SODIUM [Concomitant]

REACTIONS (6)
  - COLONIC POLYP [None]
  - DRUG HYPERSENSITIVITY [None]
  - SINUSITIS [None]
  - CONSTIPATION [None]
  - HYPOAESTHESIA [None]
  - INJECTION SITE NODULE [None]
